FAERS Safety Report 24301047 (Version 3)
Quarter: 2024Q4

REPORT INFORMATION
  Report Type: Spontaneous
  Country: US (occurrence: US)
  Receive Date: 20240910
  Receipt Date: 20241109
  Transmission Date: 20250115
  Serious: Yes (Hospitalization, Other)
  Sender: SANOFI AVENTIS
  Company Number: US-SA-2024SA258852

PATIENT
  Age: 61 Year
  Sex: Male
  Weight: 129.55 kg

DRUGS (1)
  1. DUPIXENT [Suspect]
     Active Substance: DUPILUMAB
     Indication: Dermatitis atopic
     Dosage: 300 MG, QOW
     Route: 058
     Dates: start: 20180510

REACTIONS (6)
  - Atrial fibrillation [Recovering/Resolving]
  - Cardiac disorder [Unknown]
  - Somnolence [Unknown]
  - Dizziness [Recovering/Resolving]
  - Pruritus [Recovering/Resolving]
  - Rash [Unknown]

NARRATIVE: CASE EVENT DATE: 20240101
